FAERS Safety Report 8935441 (Version 1)
Quarter: 2012Q4

REPORT INFORMATION
  Report Type: Spontaneous
  Country: US (occurrence: None)
  Receive Date: 20121119
  Receipt Date: 20121119
  Transmission Date: 20130627
  Serious: Yes (Life-Threatening)
  Sender: FDA-Public Use
  Company Number: PR-AE12-000490

PATIENT
  Sex: Male

DRUGS (1)
  1. GOODY^S POWDER [Suspect]
     Dosage: unk-unk-oral
approx.  6 months
     Route: 048

REACTIONS (2)
  - Upper gastrointestinal haemorrhage [None]
  - Gastric ulcer [None]
